FAERS Safety Report 17554247 (Version 1)
Quarter: 2020Q1

REPORT INFORMATION
  Report Type: Spontaneous
  Country: CN (occurrence: CN)
  Receive Date: 20200318
  Receipt Date: 20200318
  Transmission Date: 20200409
  Serious: Yes (Other)
  Sender: FDA-Public Use
  Company Number: CN-SA-2020SA064215

PATIENT
  Age: 76 Year
  Sex: Male
  Weight: 60 kg

DRUGS (2)
  1. ELOXATIN [Suspect]
     Active Substance: OXALIPLATIN
     Indication: CHEMOTHERAPY
     Dosage: 135 MG, QD
     Route: 041
     Dates: start: 20191206, end: 20191206
  2. RALTITREXED [Suspect]
     Active Substance: RALTITREXED
     Indication: CHEMOTHERAPY
     Dosage: 3.30 MG, QD
     Route: 041
     Dates: start: 20191206, end: 20191206

REACTIONS (1)
  - Bone marrow failure [Recovering/Resolving]

NARRATIVE: CASE EVENT DATE: 20191220
